FAERS Safety Report 16461953 (Version 1)
Quarter: 2019Q2

REPORT INFORMATION
  Report Type: Spontaneous
  Country: MY (occurrence: MY)
  Receive Date: 20190621
  Receipt Date: 20190621
  Transmission Date: 20190711
  Serious: Yes (Other)
  Sender: FDA-Public Use
  Company Number: MY-TEVA-2019-MY-1066866

PATIENT
  Age: 29 Year
  Sex: Female

DRUGS (1)
  1. PROPYLTHIOURACIL ACTAVIS TABLET 50 MG [Suspect]
     Active Substance: PROPYLTHIOURACIL
     Indication: THYROTOXIC CRISIS
     Dosage: 600 MILLIGRAM DAILY;
     Route: 048

REACTIONS (3)
  - Alanine aminotransferase increased [Recovering/Resolving]
  - Blood bilirubin increased [Recovering/Resolving]
  - Aspartate aminotransferase increased [Recovering/Resolving]
